FAERS Safety Report 8603090-5 (Version None)
Quarter: 2012Q3

REPORT INFORMATION
  Report Type: 
  Country: None (occurrence: None)
  Receive Date: 20120817
  Receipt Date: 20110726
  Transmission Date: 20120928
  Serious: No
  Sender: FDA-Public Use
  Company Number: US-GLAXOSMITHKLINE-A0938316A

PATIENT
  Age: 9 Year
  Sex: Male

DRUGS (1)
  1. TAGAMET HB 200 [Suspect]
     Indication: SKIN PAPILLOMA
     Dates: start: 20110615, end: 20110618

REACTIONS (3)
  - URTICARIA [None]
  - DRUG ADMINISTRATION ERROR [None]
  - VOMITING [None]
